FAERS Safety Report 10029506 (Version 1)
Quarter: 2014Q1

REPORT INFORMATION
  Report Type: Spontaneous
  Country: US (occurrence: None)
  Receive Date: 20140320
  Receipt Date: 20140320
  Transmission Date: 20141002
  Serious: No
  Sender: FDA-Public Use
  Company Number: None

PATIENT
  Age: 73 Year
  Sex: Female
  Weight: 72.58 kg

DRUGS (6)
  1. LYRICA [Suspect]
     Indication: ARTHRALGIA
     Dosage: 50 MG 1 CAPSULE 3 X DAY BY MOUTH
     Route: 048
     Dates: end: 20140308
  2. SIMVASTATIN [Concomitant]
  3. CITALOPRAM [Concomitant]
  4. ALENDRONATE [Concomitant]
  5. VALIUM [Concomitant]
  6. MULTIVITAMIN [Concomitant]

REACTIONS (3)
  - Dizziness [None]
  - Ear discomfort [None]
  - Unevaluable event [None]
